FAERS Safety Report 6788291-3 (Version None)
Quarter: 2010Q2

REPORT INFORMATION
  Report Type: 
  Country: None (occurrence: None)
  Receive Date: 20100623
  Receipt Date: 20080207
  Transmission Date: 20101027
  Serious: No
  Sender: FDA-Public Use
  Company Number: US-PFIZER INC-2008011929

PATIENT
  Sex: Female

DRUGS (2)
  1. AROMASIN [Suspect]
  2. FEMARA [Concomitant]

REACTIONS (4)
  - AMNESIA [None]
  - ARTHRALGIA [None]
  - MUSCULOSKELETAL STIFFNESS [None]
  - WEIGHT INCREASED [None]
